FAERS Safety Report 25877000 (Version 1)
Quarter: 2025Q4

REPORT INFORMATION
  Report Type: Spontaneous
  Country: US (occurrence: None)
  Receive Date: 20251002
  Receipt Date: 20251002
  Transmission Date: 20260118
  Serious: Yes (Hospitalization)
  Sender: FDA-CTU
  Company Number: None

PATIENT
  Age: 44 Year
  Sex: Female

DRUGS (1)
  1. AJOVY [Suspect]
     Active Substance: FREMANEZUMAB-VFRM
     Indication: Migraine
     Dosage: 225 MG/ML MONTHLY SUBCUTANEOUS
     Route: 058
     Dates: start: 20240314

REACTIONS (7)
  - Cognitive disorder [None]
  - Product use issue [None]
  - Insurance issue [None]
  - Posture abnormal [None]
  - Narcolepsy [None]
  - Hypoaesthesia [None]
  - Paraesthesia [None]

NARRATIVE: CASE EVENT DATE: 20250923
